FAERS Safety Report 4806759-3 (Version None)
Quarter: 2005Q4

REPORT INFORMATION
  Report Type: 
  Country: None (occurrence: None)
  Receive Date: 20051019
  Receipt Date: 20051003
  Transmission Date: 20060501
  Serious: Yes (Death, Hospitalization)
  Sender: FDA-Public Use
  Company Number: EWC051046319

PATIENT
  Age: 68 Year
  Sex: Female

DRUGS (14)
  1. XIGRIS (DROTRECOGIN ALFA (ACTIVATED)) [Suspect]
     Indication: SEPSIS
     Dosage: 37.4 MG
     Dates: start: 20050918, end: 20050919
  2. GABEXATE [Concomitant]
  3. SOLDESAM (DEXAMETHASONE SODIUM PHOSPHATE0 [Concomitant]
  4. DIFLUCAN [Concomitant]
  5. TRENTAL [Concomitant]
  6. FLUIMUCIL (ACETYLCYSTEINE0 [Concomitant]
  7. OMEPRAZOLE [Concomitant]
  8. ASCORBIC ACID [Concomitant]
  9. ISOPTION (VERAPAMIL HYDROCHLORIDE) [Concomitant]
  10. MERREM [Concomitant]
  11. OCTREOTIDE [Concomitant]
  12. FRAXIPARINA (NADROPARIN CALCIUM) [Concomitant]
  13. ZYVOX [Concomitant]
  14. SOLU-MEDROL [Concomitant]

REACTIONS (6)
  - ACTIVATED PARTIAL THROMBOPLASTIN TIME PROLONGED [None]
  - HAEMOGLOBIN DECREASED [None]
  - HAEMOTHORAX [None]
  - PLATELET COUNT DECREASED [None]
  - PROTHROMBIN TIME PROLONGED [None]
  - RED BLOOD CELL COUNT DECREASED [None]
